FAERS Safety Report 16834816 (Version 2)
Quarter: 2019Q3

REPORT INFORMATION
  Report Type: Report from Study
  Country: CO (occurrence: CO)
  Receive Date: 20190920
  Receipt Date: 20190930
  Transmission Date: 20191005
  Serious: Yes (Death, Hospitalization)
  Sender: FDA-Public Use
  Company Number: CO-INCYTE CORPORATION-2019IN009255

PATIENT

DRUGS (1)
  1. JAKAVI [Suspect]
     Active Substance: RUXOLITINIB
     Indication: PRODUCT USED FOR UNKNOWN INDICATION
     Dosage: 5 MG, QD
     Route: 048

REACTIONS (19)
  - Inappropriate schedule of product administration [Unknown]
  - Stomatitis [Unknown]
  - Decreased appetite [Unknown]
  - Metastases to heart [Unknown]
  - Gait inability [Unknown]
  - Diarrhoea [Unknown]
  - Metastases to liver [Unknown]
  - Metastases to lung [Unknown]
  - Oropharyngeal pain [Unknown]
  - Vomiting [Unknown]
  - White blood cell count increased [Unknown]
  - Platelet count decreased [Unknown]
  - Metastases to kidney [Unknown]
  - Metastases to pancreas [Unknown]
  - Death [Fatal]
  - Hypophagia [Unknown]
  - Haemoglobin increased [Unknown]
  - Speech disorder [Unknown]
  - Malaise [Unknown]

NARRATIVE: CASE EVENT DATE: 20190913
